FAERS Safety Report 13599372 (Version 1)
Quarter: 2017Q2

REPORT INFORMATION
  Report Type: Report from Study
  Country: US (occurrence: US)
  Receive Date: 20170531
  Receipt Date: 20170531
  Transmission Date: 20170830
  Serious: Yes (Death)
  Sender: FDA-Public Use
  Company Number: US-EXELIXIS-CABO-17009265

PATIENT
  Age: 71 Year
  Sex: Male

DRUGS (11)
  1. METFORMIN [Concomitant]
     Active Substance: METFORMIN HYDROCHLORIDE
  2. SYNTHROID [Concomitant]
     Active Substance: LEVOTHYROXINE SODIUM
  3. VITAMIN B12 [Concomitant]
     Active Substance: CYANOCOBALAMIN
  4. HYTRIN [Concomitant]
     Active Substance: TERAZOSIN HYDROCHLORIDE
  5. ASPIRIN. [Concomitant]
     Active Substance: ASPIRIN
  6. ZOCOR [Concomitant]
     Active Substance: SIMVASTATIN
  7. CABOMETYX [Suspect]
     Active Substance: CABOZANTINIB S-MALATE
     Indication: THYROID CANCER
     Dosage: 80 MG, QD
     Route: 048
     Dates: start: 20170105
  8. CELEBREX [Concomitant]
     Active Substance: CELECOXIB
  9. ZYRTEC [Concomitant]
     Active Substance: CETIRIZINE HYDROCHLORIDE
  10. FLOMAX [Concomitant]
     Active Substance: TAMSULOSIN HYDROCHLORIDE
  11. ZANTAC [Concomitant]
     Active Substance: RANITIDINE HYDROCHLORIDE

REACTIONS (2)
  - Death [Fatal]
  - Off label use [Unknown]

NARRATIVE: CASE EVENT DATE: 20170503
